FAERS Safety Report 5375508-5 (Version None)
Quarter: 2007Q2

REPORT INFORMATION
  Report Type: 
  Country: None (occurrence: None)
  Receive Date: 20070629
  Receipt Date: 20070621
  Transmission Date: 20071010
  Serious: Yes (Other)
  Sender: FDA-Public Use
  Company Number: CA-PFIZER INC-2007048877

PATIENT
  Sex: Female

DRUGS (1)
  1. DEPO-PROVERA SUSPENSION/INJ [Suspect]
     Indication: CONTRACEPTION
     Dosage: FREQ:LAST INJECTION, SECOND CYCLE
     Route: 030
     Dates: start: 20060101, end: 20060101

REACTIONS (17)
  - ABDOMINAL DISTENSION [None]
  - ALOPECIA [None]
  - AMENORRHOEA [None]
  - BACK PAIN [None]
  - CRYING [None]
  - DIZZINESS [None]
  - FATIGUE [None]
  - GALACTORRHOEA [None]
  - HOT FLUSH [None]
  - INJECTION SITE ATROPHY [None]
  - LIBIDO DECREASED [None]
  - MENOMETRORRHAGIA [None]
  - NERVOUSNESS [None]
  - PALPITATIONS [None]
  - PANIC ATTACK [None]
  - POLLAKIURIA [None]
  - SCIATICA [None]
